FAERS Safety Report 9781886 (Version 1)
Quarter: 2013Q4

REPORT INFORMATION
  Report Type: Spontaneous
  Country: US (occurrence: US)
  Receive Date: 20131225
  Receipt Date: 20131225
  Transmission Date: 20140711
  Serious: No
  Sender: FDA-Public Use
  Company Number: US-B.I. PHARMACEUTICALS,INC./RIDGEFIELD-2013-BI-42070BP

PATIENT
  Sex: Female
  Weight: 54 kg

DRUGS (5)
  1. SPIRIVA [Suspect]
     Indication: CHRONIC OBSTRUCTIVE PULMONARY DISEASE
     Dosage: 18 MCG
     Route: 055
  2. GABAPENTIN [Concomitant]
     Indication: OSTEOARTHRITIS
     Dosage: 200 MG
     Route: 048
  3. PROAIR HFA [Concomitant]
     Indication: CHRONIC OBSTRUCTIVE PULMONARY DISEASE
     Dosage: FORMULATION: INHALATION SPRAY
     Route: 055
  4. FOSAMAX [Concomitant]
     Indication: OSTEOARTHRITIS
     Route: 048
  5. PANTOPRAZOLE [Concomitant]
     Indication: ULCER HAEMORRHAGE
     Dosage: 40 MG
     Route: 048

REACTIONS (2)
  - Ocular hyperaemia [Recovered/Resolved]
  - Eye swelling [Recovered/Resolved]
